FAERS Safety Report 8907269 (Version 1)
Quarter: 2012Q4

REPORT INFORMATION
  Report Type: 
  Country: US (occurrence: US)
  Receive Date: 20121114
  Receipt Date: 20121114
  Transmission Date: 20130627
  Serious: No
  Sender: FDA-Public Use
  Company Number: US-BAYER-2012-118928

PATIENT

DRUGS (2)
  1. ALEVE CAPLET/TABLET,MIDOL EXTENDED RELIEF CAPLET [Suspect]
     Indication: MENSTRUAL CRAMP
     Dosage: 6 DF, UNK
  2. MOTRIN [Concomitant]
     Dosage: 4 DF, UNK

REACTIONS (2)
  - Insomnia [None]
  - Drug ineffective [None]
